FAERS Safety Report 16794026 (Version 1)
Quarter: 2019Q3

REPORT INFORMATION
  Report Type: Spontaneous
  Country: US (occurrence: US)
  Receive Date: 20190911
  Receipt Date: 20190911
  Transmission Date: 20191005
  Serious: No
  Sender: FDA-Public Use
  Company Number: US-GLENMARK PHARMACEUTICALS-2019GMK042211

PATIENT

DRUGS (2)
  1. ATOMOXETINE CAPSULES USP [40MG] [Suspect]
     Active Substance: ATOMOXETINE HYDROCHLORIDE
     Indication: AUTONOMIC NERVOUS SYSTEM IMBALANCE
  2. ATOMOXETINE CAPSULES USP [40MG] [Suspect]
     Active Substance: ATOMOXETINE HYDROCHLORIDE
     Indication: HYPOTENSION
     Dosage: 40 MG, BID
     Route: 048
     Dates: start: 201907, end: 20190714

REACTIONS (4)
  - Gastrointestinal inflammation [Recovered/Resolved]
  - Constipation [Recovered/Resolved]
  - Contraindicated product administered [Unknown]
  - Product use in unapproved indication [Unknown]

NARRATIVE: CASE EVENT DATE: 201907
